FAERS Safety Report 5073058-7 (Version None)
Quarter: 2006Q3

REPORT INFORMATION
  Report Type: 
  Country: None (occurrence: None)
  Receive Date: 20060802
  Receipt Date: 20060726
  Transmission Date: 20061208
  Serious: Yes (Other)
  Sender: FDA-Public Use
  Company Number: 2006076174

PATIENT
  Age: 79 Year
  Sex: Male

DRUGS (5)
  1. LISTERINE MOUTHWASH ADVANCED ARCTIC MINT (MENTHOL, METHYL SALICYLATE, [Suspect]
     Dosage: 4 TSP TWICE DAILY FOR 2 DAYS, ORAL
     Route: 048
     Dates: start: 20060301, end: 20060301
  2. ALLOPURINOL [Concomitant]
  3. VERAPAMIL [Concomitant]
  4. LEVOTHYROXINE SODIUM [Concomitant]
  5. LANSOPRAZOLE [Concomitant]

REACTIONS (2)
  - APHONIA [None]
  - DYSPHONIA [None]
